FAERS Safety Report 5333641-8 (Version None)
Quarter: 2007Q2

REPORT INFORMATION
  Report Type: 
  Country: None (occurrence: None)
  Receive Date: 20070306
  Receipt Date: 20061103
  Transmission Date: 20071010
  Serious: Yes (Death, Hospitalization)
  Sender: FDA-Public Use
  Company Number: A03200606688

PATIENT
  Age: 86 Year
  Sex: Female

DRUGS (4)
  1. PLAVIX [Suspect]
     Indication: STENT PLACEMENT
     Dosage: 75 MG QD - ORAL
     Route: 048
     Dates: start: 20061001, end: 20061001
  2. ASPIRIN [Suspect]
     Indication: STENT PLACEMENT
     Dosage: ORAL
     Route: 048
     Dates: start: 20061001, end: 20061001
  3. ALTEPLASE -SOLUTION - UNIT DOSE : UNKNOWN [Suspect]
     Indication: STENT OCCLUSION
     Dosage: INTRAVENOUS NOS
     Route: 042
     Dates: start: 20061001, end: 20061001
  4. HEPARIN [Suspect]
     Indication: STENT OCCLUSION
     Dosage: INTRAVENOUS NOS
     Route: 042
     Dates: start: 20061001, end: 20061001

REACTIONS (2)
  - HAEMORRHAGE [None]
  - STENT OCCLUSION [None]
